FAERS Safety Report 7353966-4 (Version None)
Quarter: 2011Q1

REPORT INFORMATION
  Report Type: 
  Country: None (occurrence: None)
  Receive Date: 20110315
  Receipt Date: 20110301
  Transmission Date: 20110831
  Serious: Yes (Other)
  Sender: FDA-Public Use
  Company Number: PHHY2011CN17877

PATIENT
  Age: 41 Year
  Sex: Male

DRUGS (2)
  1. PREDNISONE [Suspect]
     Dosage: 1 MG/KG, QD
     Route: 048
  2. HEPARIN [Suspect]
     Dosage: 50 MG, QD
     Route: 042

REACTIONS (3)
  - PRIAPISM [None]
  - PENILE SWELLING [None]
  - PENILE PAIN [None]
